FAERS Safety Report 12639759 (Version 1)
Quarter: 2016Q3

REPORT INFORMATION
  Report Type: Spontaneous
  Country: US (occurrence: None)
  Receive Date: 20160809
  Receipt Date: 20160809
  Transmission Date: 20161109
  Serious: No
  Sender: FDA-Public Use
  Company Number: None

PATIENT
  Age: 68 Year
  Sex: Female
  Weight: 68.04 kg

DRUGS (6)
  1. WESTHROID PURE THYROID MED [Concomitant]
  2. MIRVASO [Suspect]
     Active Substance: BRIMONIDINE TARTRATE
     Indication: ROSACEA
     Dosage: 5MG OF BROMONIDINE PER GRAM PEA SIZE DROP AT BEDTIME RUB ON SKIN (FACE)
     Dates: start: 20160713, end: 20160727
  3. MULTI-VIT [Concomitant]
     Active Substance: VITAMINS
  4. FISH OIL [Concomitant]
     Active Substance: FISH OIL
  5. B-COMPLEX VIT. [Concomitant]
  6. VIT. D, FOLIC ACID, VIT. B - COMPLEX [Concomitant]
     Active Substance: FOLIC ACID\VITAMINS

REACTIONS (2)
  - Hypoaesthesia [None]
  - Rosacea [None]

NARRATIVE: CASE EVENT DATE: 20160727
